FAERS Safety Report 8909226 (Version 2)
Quarter: 2012Q4

REPORT INFORMATION
  Report Type: Spontaneous
  Country: FR (occurrence: None)
  Receive Date: 20121107
  Receipt Date: 20121119
  Transmission Date: 20130627
  Serious: Yes (Death, Hospitalization)
  Sender: FDA-Public Use
  Company Number: DSA_60742_2012

PATIENT
  Age: 62 Year
  Sex: Male

DRUGS (26)
  1. FLAGYL [Suspect]
     Indication: OSTEITIS
     Route: 042
     Dates: start: 20120705, end: 20120718
  2. FLAGYL [Suspect]
     Indication: PSEUDOMONAS INFECTION
     Route: 042
     Dates: start: 20120705, end: 20120718
  3. FLAGYL [Suspect]
     Indication: CANDIDIASIS
     Route: 042
     Dates: start: 20120705, end: 20120718
  4. FLAGYL [Suspect]
     Indication: BACTEROIDES BACTEREMIA
     Route: 042
     Dates: start: 20120705, end: 20120718
  5. FLAGYL [Suspect]
     Route: 042
     Dates: start: 20120705, end: 20120718
  6. FLAGYL [Suspect]
     Route: 042
     Dates: start: 20120705, end: 20120718
  7. COLIMYCINE [Suspect]
     Indication: INJECTION SITE INFECTION
     Route: 042
     Dates: start: 20120713, end: 20120813
  8. COLIMYCINE [Suspect]
     Indication: PSEUDOMONAS INFECTION
     Route: 042
     Dates: start: 20120713, end: 20120813
  9. AMIKACIN [Suspect]
     Indication: INJECTION SITE INFECTION
     Route: 042
     Dates: start: 20120712, end: 20120725
  10. AMIKACIN [Suspect]
     Indication: INJECTION SITE INFECTION
     Route: 042
     Dates: start: 20120802, end: 20120802
  11. CEFTAZIDIME [Suspect]
     Indication: PRODUCT USED FOR UNKNOWN INDICATION
     Dosage: (then 6 g/day)
     Route: 042
     Dates: start: 20120712, end: 20120713
  12. MERONEM [Suspect]
     Indication: PRODUCT USED FOR UNKNOWN INDICATION
     Route: 042
     Dates: start: 20120719, end: 20120720
  13. ATACAND [Concomitant]
  14. ATENOLOL [Concomitant]
  15. KARDEGIC [Concomitant]
  16. NOVONORM [Concomitant]
  17. INEGY [Concomitant]
  18. MOPRAL [Concomitant]
  19. TOPALGIC /00599202/ [Concomitant]
  20. STILNOX [Concomitant]
  21. SEROPRAM [Concomitant]
  22. EUPANTOL [Concomitant]
  23. CASPOFUNGIN [Concomitant]
  24. FLUCONAZOLE [Concomitant]
  25. DORIPENEM [Concomitant]
  26. MERONEM [Concomitant]

REACTIONS (3)
  - Renal failure [None]
  - Overdose [None]
  - Dialysis [None]
